FAERS Safety Report 6134380-6 (Version None)
Quarter: 2009Q1

REPORT INFORMATION
  Report Type: 
  Country: None (occurrence: None)
  Receive Date: 20090327
  Receipt Date: 20090320
  Transmission Date: 20090719
  Serious: Yes (Hospitalization)
  Sender: FDA-Public Use
  Company Number: US-JNJFOC-20090107117

PATIENT
  Age: 74 Year
  Sex: Female
  Weight: 72.58 kg

DRUGS (13)
  1. MYLANTA MAXIMUM STRENGTH CHERRY [Suspect]
     Indication: GASTROOESOPHAGEAL REFLUX DISEASE
     Dosage: ^A SIP^ AT NIGHT, 3-4 TIMES PER WEEK; ENDING ON 26-JAN-2009.
     Route: 048
  2. MILK OF MAGNESIA [Suspect]
     Indication: CONSTIPATION
  3. OMEPRAZOLE [Suspect]
     Indication: GASTROOESOPHAGEAL REFLUX DISEASE
  4. NIACIN [Concomitant]
     Indication: MEDICAL DIET
  5. GLUCOSAMINE CHONDROITIN [Concomitant]
     Indication: MEDICAL DIET
  6. CALCIUM [Concomitant]
     Indication: MEDICAL DIET
  7. VITAMIN B COMPLEX CAP [Concomitant]
     Indication: MEDICAL DIET
  8. MULTI-VITAMIN [Concomitant]
     Indication: MEDICAL DIET
  9. STOOL SOFTENERS [Concomitant]
     Indication: CONSTIPATION
  10. FOLIC ACID [Concomitant]
     Indication: MEDICAL DIET
  11. LOVAZA [Concomitant]
     Indication: MEDICAL DIET
  12. POTASSIUM CHLORIDE [Concomitant]
     Indication: MEDICAL DIET
  13. OSTEO BIOFLEX [Concomitant]
     Indication: MEDICAL DIET

REACTIONS (4)
  - CONSTIPATION [None]
  - DRUG ADMINISTRATION ERROR [None]
  - SMALL INTESTINAL OBSTRUCTION [None]
  - WRONG TECHNIQUE IN DRUG USAGE PROCESS [None]
